FAERS Safety Report 6167149-7 (Version None)
Quarter: 2009Q2

REPORT INFORMATION
  Report Type: 
  Country: None (occurrence: None)
  Receive Date: 20090424
  Receipt Date: 20090416
  Transmission Date: 20091009
  Serious: Yes (Other)
  Sender: FDA-Public Use
  Company Number: JP-MERCK-0904USA02121

PATIENT
  Age: 61 Year
  Sex: Male

DRUGS (5)
  1. HYZAAR [Suspect]
     Route: 048
  2. CALBLOCK [Concomitant]
     Route: 048
  3. URSO 250 [Concomitant]
     Route: 048
  4. CRESTOR [Concomitant]
     Route: 048
  5. GOREI-SAN [Concomitant]
     Route: 048

REACTIONS (2)
  - ACUTE PRERENAL FAILURE [None]
  - BLOOD CREATINE PHOSPHOKINASE INCREASED [None]
